FAERS Safety Report 23635722 (Version 2)
Quarter: 2025Q1

REPORT INFORMATION
  Report Type: Spontaneous
  Country: US (occurrence: US)
  Receive Date: 20240315
  Receipt Date: 20250227
  Transmission Date: 20250409
  Serious: Yes (Other)
  Sender: SANOFI AVENTIS
  Company Number: US-SA-2024SA081693

PATIENT
  Age: 87 Year
  Sex: Female

DRUGS (1)
  1. DUPIXENT [Suspect]
     Active Substance: DUPILUMAB
     Indication: Dermatitis atopic
     Dosage: 300 MG, QOW
     Route: 058

REACTIONS (7)
  - Squamous cell carcinoma [Unknown]
  - Gingival bleeding [Recovering/Resolving]
  - Gingival swelling [Recovering/Resolving]
  - Gingival erythema [Recovering/Resolving]
  - Vitamin D deficiency [Unknown]
  - Eczema [Unknown]
  - Therapeutic response decreased [Unknown]
